FAERS Safety Report 10053275 (Version 2)
Quarter: 2014Q2

REPORT INFORMATION
  Report Type: Spontaneous
  Country: US (occurrence: US)
  Receive Date: 20140402
  Receipt Date: 20140422
  Transmission Date: 20141212
  Serious: Yes (Hospitalization)
  Sender: FDA-Public Use
  Company Number: US-009507513-1403USA012502

PATIENT
  Sex: Male

DRUGS (5)
  1. SINEMET [Suspect]
     Indication: PARKINSON^S DISEASE
     Dosage: 25-100 MG, QID
     Route: 048
     Dates: start: 2006
  2. CARBIDOPA (+) LEVODOPA [Suspect]
  3. NEUPRO [Concomitant]
  4. SELEGILINE HYDROCHLORIDE [Concomitant]
     Dosage: 5 MG, UNK
  5. STALEVO [Suspect]

REACTIONS (10)
  - Speech disorder [Unknown]
  - Musculoskeletal stiffness [Not Recovered/Not Resolved]
  - Dysphagia [Unknown]
  - Agitation [Not Recovered/Not Resolved]
  - Confusional state [Unknown]
  - Delirium [Unknown]
  - Aggression [Unknown]
  - Inappropriate schedule of drug administration [Unknown]
  - Drug ineffective [Unknown]
  - Medication error [Unknown]
